FAERS Safety Report 24192047 (Version 5)
Quarter: 2025Q1

REPORT INFORMATION
  Report Type: Report from Study
  Country: US (occurrence: US)
  Receive Date: 20240809
  Receipt Date: 20250206
  Transmission Date: 20250408
  Serious: Yes (Other)
  Sender: ABBVIE
  Company Number: US-ABBVIE-5870180

PATIENT
  Age: 44 Year
  Sex: Female

DRUGS (2)
  1. SKYRIZI [Suspect]
     Active Substance: RISANKIZUMAB-RZAA
     Indication: Psoriasis
     Route: 058
     Dates: start: 202404
  2. SKYRIZI [Suspect]
     Active Substance: RISANKIZUMAB-RZAA
     Route: 058
     Dates: start: 20240506

REACTIONS (12)
  - Cerebrovascular accident [Unknown]
  - Cardiac operation [Unknown]
  - Nervous system disorder [Unknown]
  - Fistula [Unknown]
  - Hepatic neoplasm [Unknown]
  - Rash [Unknown]
  - Nausea [Unknown]
  - Feeding disorder [Unknown]
  - Decreased appetite [Unknown]
  - Brain fog [Unknown]
  - Fatigue [Unknown]
  - Insomnia [Unknown]

NARRATIVE: CASE EVENT DATE: 20240101
